FAERS Safety Report 7422166-1 (Version None)
Quarter: 2011Q2

REPORT INFORMATION
  Report Type: 
  Country: None (occurrence: None)
  Receive Date: 20110418
  Receipt Date: 20101221
  Transmission Date: 20111010
  Serious: Yes (Hospitalization, Other)
  Sender: FDA-Public Use
  Company Number: US-BAYER-201030594NA

PATIENT
  Age: 16 Year
  Sex: Female
  Weight: 105.67 kg

DRUGS (10)
  1. LISINOPRIL [Concomitant]
     Dosage: UNK
     Dates: start: 20030101, end: 20100101
  2. NSAID'S [Concomitant]
  3. YAZ [Suspect]
     Indication: PRODUCT USED FOR UNKNOWN INDICATION
     Route: 048
     Dates: start: 20021001
  4. OCELLA [Suspect]
     Indication: PRODUCT USED FOR UNKNOWN INDICATION
     Route: 048
     Dates: start: 20021001
  5. LIPITOR [Concomitant]
     Dosage: 20 MG, QD
     Route: 048
  6. LIPIDOR NOS [Concomitant]
  7. TUSSI-12 [Concomitant]
     Indication: COUGH
     Dosage: UNK UNK, BID
     Route: 048
  8. YASMIN [Suspect]
     Indication: PRODUCT USED FOR UNKNOWN INDICATION
     Dosage: UNK
     Route: 048
     Dates: start: 20021001, end: 20030401
  9. ALLEGRA [Concomitant]
     Dosage: 180 MG, QD
     Route: 048
  10. ZOLOFT [Concomitant]
     Indication: DEPRESSION
     Dosage: 50 MG, QD
     Route: 048

REACTIONS (2)
  - DEEP VEIN THROMBOSIS [None]
  - PULMONARY EMBOLISM [None]
